FAERS Safety Report 10987045 (Version 1)
Quarter: 2015Q2

REPORT INFORMATION
  Report Type: Spontaneous
  Country: US (occurrence: US)
  Receive Date: 20150404
  Receipt Date: 20150404
  Transmission Date: 20150821
  Serious: No
  Sender: FDA-Public Use
  Company Number: US-SA-2015SA029429

PATIENT
  Age: 34 Year
  Sex: Male

DRUGS (4)
  1. ALLEGRA-D [Suspect]
     Active Substance: FEXOFENADINE\PSEUDOEPHEDRINE
     Indication: RHINORRHOEA
     Dosage: TAKEN FROM: LAST MONDAY
     Route: 048
  2. ALLEGRA-D [Suspect]
     Active Substance: FEXOFENADINE\PSEUDOEPHEDRINE
     Indication: SNEEZING
     Dosage: TAKEN FROM: LAST MONDAY
     Route: 048
  3. ALLEGRA-D [Suspect]
     Active Substance: FEXOFENADINE\PSEUDOEPHEDRINE
     Indication: MULTIPLE ALLERGIES
     Dosage: TAKEN FROM: LAST MONDAY
     Route: 048
  4. ALLEGRA-D [Suspect]
     Active Substance: FEXOFENADINE\PSEUDOEPHEDRINE
     Indication: EYE PRURITUS
     Dosage: TAKEN FROM: LAST MONDAY
     Route: 048

REACTIONS (1)
  - Drug effect decreased [Unknown]
